FAERS Safety Report 5227698-2 (Version None)
Quarter: 2007Q1

REPORT INFORMATION
  Report Type: 
  Country: None (occurrence: None)
  Receive Date: 20070202
  Receipt Date: 20070126
  Transmission Date: 20070707
  Serious: Yes (Hospitalization)
  Sender: FDA-Public Use
  Company Number: DE-ABBOTT-07P-062-0357235-00

PATIENT
  Age: 14 Year
  Sex: Male

DRUGS (2)
  1. KLACID UNO [Suspect]
     Indication: BRONCHITIS
     Route: 048
     Dates: start: 20070108, end: 20070114
  2. IBUPROFEN [Suspect]
     Indication: ARTHRALGIA
     Route: 048
     Dates: start: 20070115, end: 20070120

REACTIONS (5)
  - ABDOMINAL PAIN [None]
  - ARTHRALGIA [None]
  - BONE PAIN [None]
  - DIZZINESS [None]
  - GAIT DISTURBANCE [None]
